FAERS Safety Report 21184933 (Version 1)
Quarter: 2022Q3

REPORT INFORMATION
  Report Type: Spontaneous
  Country: NO (occurrence: NO)
  Receive Date: 20220808
  Receipt Date: 20220808
  Transmission Date: 20221027
  Serious: Yes (Other)
  Sender: FDA-Public Use
  Company Number: None

PATIENT
  Age: 34 Year
  Sex: Female
  Weight: 74 kg

DRUGS (5)
  1. MIRENA [Suspect]
     Active Substance: LEVONORGESTREL
     Indication: Contraception
     Dosage: 20?G/DAY
     Route: 015
     Dates: start: 2022
  2. VITAMIN D NOS [Concomitant]
     Active Substance: VITAMIN D NOS
  3. NYCOPLUS HOYKONSENTRERT OMEGA 3 [Concomitant]
     Dosage: UNK
  4. VITEX AGNUS CASTUS [Concomitant]
  5. VITAMIN C [Concomitant]
     Active Substance: ASCORBIC ACID

REACTIONS (8)
  - Suicidal ideation [Unknown]
  - Premenstrual dysphoric disorder [Unknown]
  - Depression [Not Recovered/Not Resolved]
  - Aggression [Unknown]
  - Premenstrual syndrome [Not Recovered/Not Resolved]
  - Depressed mood [Unknown]
  - Irritability [Unknown]
  - Affect lability [Unknown]

NARRATIVE: CASE EVENT DATE: 20220101
